FAERS Safety Report 8462869-3 (Version None)
Quarter: 2012Q2

REPORT INFORMATION
  Report Type: 
  Country: None (occurrence: None)
  Receive Date: 20120625
  Receipt Date: 20120613
  Transmission Date: 20120825
  Serious: Yes (Other)
  Sender: FDA-Public Use
  Company Number: JP-ROCHE-1074658

PATIENT
  Sex: Female
  Weight: 50 kg

DRUGS (13)
  1. SEVELAMER HYDROCHLORIDE [Concomitant]
     Indication: HYPERPARATHYROIDISM SECONDARY
     Dosage: IMMEDIATELY BEFORE THE SUPPER THE MORNING AND DAYTIME BEFORE SEPTEMBER, 2011
     Route: 048
  2. SHINLUCK [Concomitant]
     Indication: CONSTIPATION
     Dosage: BEFORE IT KNEADS BEFORE SEPTEMBER, 2011
     Route: 048
  3. ROCALTROL [Concomitant]
     Indication: HYPERPARATHYROIDISM SECONDARY
     Dosage: 1.5-2.0I?G BEFORE 2010
     Route: 042
  4. ASPIRIN [Concomitant]
     Indication: SHUNT STENOSIS
     Dosage: AFTER THE BREAKFAST BEFORE 2003
     Route: 048
  5. MIRCERA [Suspect]
     Indication: NEPHROGENIC ANAEMIA
     Route: 042
     Dates: start: 20120110, end: 20120110
  6. MIRCERA [Suspect]
     Route: 042
     Dates: start: 20120214, end: 20120214
  7. OXATOMIDE [Concomitant]
     Indication: RHINITIS ALLERGIC
     Dosage: AFTER THE SUPPER THE MORNING BEFORE SEPTEMBER, 2011
     Route: 048
  8. CONIEL [Concomitant]
     Indication: HYPERTENSION
     Dosage: MORNING SUPPER BACK OF 2011 IN DECEMBER
     Route: 048
  9. IRON SUCROSE [Concomitant]
     Indication: NEPHROGENIC ANAEMIA
     Route: 042
     Dates: start: 20120216, end: 20120308
  10. LANSOPRAZOLE [Concomitant]
     Indication: PROPHYLAXIS AGAINST GASTROINTESTINAL ULCER
     Dosage: AFTER THE SUPPER BEFORE 2003
     Route: 048
  11. HEPARIN [Concomitant]
     Indication: HAEMODIALYSIS
     Dosage: 600-800 UNITS, DRUG: HEPARIN AND PREPARATIONS
     Route: 042
     Dates: start: 19960402
  12. PREDNISOLONE [Concomitant]
     Indication: SYSTEMIC LUPUS ERYTHEMATOSUS
     Dosage: AFTER THE BREAKFAST BEFORE 1978
     Route: 048
  13. CINACALCET HYDROCHLORIDE [Concomitant]
     Indication: HYPERPARATHYROIDISM SECONDARY
     Dosage: AFTER THE BREAKFAST BEFORE SEPTEMBER, 2011, DRUG REPORTED REGPARA
     Route: 048

REACTIONS (1)
  - ANGINA UNSTABLE [None]
